FAERS Safety Report 9506653 (Version 1)
Quarter: 2013Q3

REPORT INFORMATION
  Report Type: Spontaneous
  Country: ES (occurrence: ES)
  Receive Date: 20130908
  Receipt Date: 20130908
  Transmission Date: 20140515
  Serious: Yes (Hospitalization)
  Sender: FDA-Public Use
  Company Number: ES-MYLANLABS-2013S1019763

PATIENT
  Age: 45 Year
  Sex: Male

DRUGS (27)
  1. FENTANYL [Suspect]
     Indication: BREAKTHROUGH PAIN
     Dosage: INCREASED TO 100 MICROG/72H
     Route: 062
     Dates: start: 200809
  2. FENTANYL [Suspect]
     Indication: INTENTIONAL DRUG MISUSE
     Dosage: INCREASED TO 100 MICROG/72H
     Route: 062
     Dates: start: 200809
  3. FENTANYL [Suspect]
     Indication: BREAKTHROUGH PAIN
     Dosage: THEN APPLIED 3 PATCHES AT SAME TIME (300 MICROG/H)
     Route: 062
     Dates: start: 200809
  4. FENTANYL [Suspect]
     Indication: INTENTIONAL DRUG MISUSE
     Dosage: THEN APPLIED 3 PATCHES AT SAME TIME (300 MICROG/H)
     Route: 062
     Dates: start: 200809
  5. FENTANYL [Suspect]
     Indication: BREAKTHROUGH PAIN
     Route: 062
     Dates: start: 200809
  6. FENTANYL [Suspect]
     Indication: INTENTIONAL DRUG MISUSE
     Route: 062
     Dates: start: 200809
  7. FENTANYL [Suspect]
     Indication: BREAKTHROUGH PAIN
     Dosage: 400 MICROG AS REQUIRED; LATER RECEIVED 1200 MICROG
     Route: 002
     Dates: start: 200809
  8. FENTANYL [Suspect]
     Indication: INTENTIONAL DRUG MISUSE
     Dosage: 400 MICROG AS REQUIRED; LATER RECEIVED 1200 MICROG
     Route: 002
     Dates: start: 200809
  9. FENTANYL [Suspect]
     Indication: BREAKTHROUGH PAIN
     Dosage: 1200 MICROG WITH APPROXIMATELY 8 UNITS/D
     Route: 002
     Dates: start: 200809
  10. FENTANYL [Suspect]
     Indication: INTENTIONAL DRUG MISUSE
     Dosage: 1200 MICROG WITH APPROXIMATELY 8 UNITS/D
     Route: 002
     Dates: start: 200809
  11. OXYCODONE [Suspect]
     Indication: BREAKTHROUGH PAIN
     Dosage: INCREASED TO 60 MG/8H
     Route: 065
     Dates: start: 200906
  12. OXYCODONE [Suspect]
     Indication: INTENTIONAL DRUG MISUSE
     Dosage: INCREASED TO 60 MG/8H
     Route: 065
     Dates: start: 200906
  13. OXYCODONE [Suspect]
     Indication: BREAKTHROUGH PAIN
     Route: 065
     Dates: start: 200906
  14. OXYCODONE [Suspect]
     Indication: INTENTIONAL DRUG MISUSE
     Route: 065
     Dates: start: 200906
  15. OXYCODONE [Suspect]
     Indication: BREAKTHROUGH PAIN
     Dosage: 10MG RAPID-RELEASE AS REQUIRED; THEN 20 MG/24H
     Route: 065
     Dates: start: 200906
  16. OXYCODONE [Suspect]
     Indication: INTENTIONAL DRUG MISUSE
     Dosage: 10MG RAPID-RELEASE AS REQUIRED; THEN 20 MG/24H
     Route: 065
     Dates: start: 200906
  17. OXYCODONE [Suspect]
     Indication: BREAKTHROUGH PAIN
     Dosage: RAPID-RELEASE; THEN TOOK 4 OR 5 X 20MG IN 12 H
     Route: 065
     Dates: start: 200906
  18. OXYCODONE [Suspect]
     Indication: INTENTIONAL DRUG MISUSE
     Dosage: RAPID-RELEASE; THEN TOOK 4 OR 5 X 20MG IN 12 H
     Route: 065
     Dates: start: 200906
  19. OXYCODONE [Suspect]
     Indication: BREAKTHROUGH PAIN
     Dosage: 4 OR 5 RAPID-RELEASE 20MG TAKEN IN 12H (BEFORE JUNE 2010 ADMISSION)
     Route: 065
     Dates: start: 200906
  20. OXYCODONE [Suspect]
     Indication: INTENTIONAL DRUG MISUSE
     Dosage: 4 OR 5 RAPID-RELEASE 20MG TAKEN IN 12H (BEFORE JUNE 2010 ADMISSION)
     Route: 065
     Dates: start: 200906
  21. ALPRAZOLAM [Concomitant]
     Indication: DEPRESSION
     Dosage: THEN 0.5 MG/8H
     Route: 065
  22. ALPRAZOLAM [Concomitant]
     Indication: DEPRESSION
     Dosage: THEN TOOK 0.5MG SUBLINGUALLY
     Route: 065
  23. DEXKETOPROFEN TROMETAMOL [Concomitant]
     Indication: BREAKTHROUGH PAIN
     Route: 065
  24. ALPRAZOLAM [Concomitant]
     Indication: DEPRESSION
     Dosage: 0.5MG SUBLINGUALLY IN 12H
     Route: 060
  25. GABAPENTIN [Concomitant]
     Indication: BREAKTHROUGH PAIN
     Dosage: TITRATED DOSE
     Route: 065
     Dates: start: 200906
  26. VENLAFAXINE [Concomitant]
     Indication: BREAKTHROUGH PAIN
     Dosage: RETARD
     Route: 065
     Dates: start: 201001
  27. DEXAMETHASONE [Concomitant]
     Route: 065

REACTIONS (4)
  - Drug dependence [Recovering/Resolving]
  - Self-medication [Recovered/Resolved]
  - Intentional drug misuse [Recovered/Resolved]
  - Drug dependence [Recovering/Resolving]
